FAERS Safety Report 4295146-5 (Version None)
Quarter: 2004Q1

REPORT INFORMATION
  Report Type: 
  Country: None (occurrence: None)
  Receive Date: 20040212
  Receipt Date: 20040127
  Transmission Date: 20041129
  Serious: Yes (Hospitalization, Other)
  Sender: FDA-Public Use
  Company Number: 167117

PATIENT
  Age: 60 Year
  Sex: Female
  Weight: 72.5755 kg

DRUGS (4)
  1. AVONEX [Suspect]
     Indication: MULTIPLE SCLEROSIS
     Dosage: 30 MCG QW IM
     Route: 030
     Dates: start: 20011001
  2. LEVOXYL [Concomitant]
  3. LIDEX [Concomitant]
  4. MULTIVITAMIN [Concomitant]

REACTIONS (6)
  - ASTHMA [None]
  - BRONCHIAL INFECTION [None]
  - GASTROOESOPHAGEAL REFLUX DISEASE [None]
  - OSTEOPOROSIS [None]
  - PNEUMONIA [None]
  - PULMONARY FIBROSIS [None]
